FAERS Safety Report 20492795 (Version 1)
Quarter: 2022Q1

REPORT INFORMATION
  Report Type: Spontaneous
  Country: US (occurrence: None)
  Receive Date: 20220219
  Receipt Date: 20220219
  Transmission Date: 20220423
  Serious: No
  Sender: FDA-Public Use
  Company Number: 2022A060167

PATIENT
  Age: 83 Year
  Sex: Male
  Weight: 67.1 kg

DRUGS (4)
  1. FARXIGA [Suspect]
     Active Substance: DAPAGLIFLOZIN PROPANEDIOL
     Indication: Product used for unknown indication
     Route: 048
  2. TREPROSTINIL SODIUM [Suspect]
     Active Substance: TREPROSTINIL SODIUM
     Indication: Pulmonary arterial hypertension
     Dosage: 18-54 ?G, QID
     Route: 055
     Dates: start: 20210305
  3. OPSUMIT [Concomitant]
     Active Substance: MACITENTAN
  4. DILTIAZEM [Concomitant]
     Active Substance: DILTIAZEM

REACTIONS (1)
  - Vomiting [Unknown]
